FAERS Safety Report 8396364-7 (Version None)
Quarter: 2012Q2

REPORT INFORMATION
  Report Type: 
  Country: None (occurrence: None)
  Receive Date: 20120530
  Receipt Date: 20120521
  Transmission Date: 20120825
  Serious: Yes (Disabling, Other)
  Sender: FDA-Public Use
  Company Number: US-MERCK-1202USA03898

PATIENT
  Age: 71 Year
  Sex: Female

DRUGS (2)
  1. CALCIUM (UNSPECIFIED) [Concomitant]
     Route: 065
  2. FOSAMAX [Suspect]
     Indication: OSTEOPOROSIS
     Route: 048
     Dates: start: 20020101, end: 20080101

REACTIONS (16)
  - GINGIVAL INFECTION [None]
  - BONE LOSS [None]
  - CONCUSSION [None]
  - OSTEOARTHRITIS [None]
  - ORAL CAVITY FISTULA [None]
  - HYPERCHOLESTEROLAEMIA [None]
  - OSTEONECROSIS OF JAW [None]
  - GINGIVAL ERYTHEMA [None]
  - MALOCCLUSION [None]
  - BREAST CANCER [None]
  - OSTEOMYELITIS [None]
  - GINGIVAL OEDEMA [None]
  - INFECTION [None]
  - JAW DISORDER [None]
  - DEVICE FAILURE [None]
  - TOOTH DISORDER [None]
